FAERS Safety Report 5392028-2 (Version None)
Quarter: 2007Q3

REPORT INFORMATION
  Report Type: 
  Country: None (occurrence: None)
  Receive Date: 20070720
  Receipt Date: 20070717
  Transmission Date: 20080115
  Serious: Yes (Disabling)
  Sender: FDA-Public Use
  Company Number: FR-BAYER-200410255BFR

PATIENT
  Age: 33 Year
  Sex: Female
  Weight: 57 kg

DRUGS (1)
  1. IZILOX [Suspect]
     Indication: SINUSITIS
     Route: 048
     Dates: start: 20040402, end: 20040402

REACTIONS (2)
  - DYSKINESIA [None]
  - VERTIGO [None]
